FAERS Safety Report 19932919 (Version 1)
Quarter: 2021Q4

REPORT INFORMATION
  Report Type: Spontaneous
  Country: US (occurrence: US)
  Receive Date: 20211007
  Receipt Date: 20211007
  Transmission Date: 20220303
  Serious: No
  Sender: FDA-Public Use
  Company Number: None

PATIENT
  Age: 7 Year
  Sex: Male
  Weight: 20.25 kg

DRUGS (1)
  1. COPPERTONE PURE AND SIMPLE KIDS SPF 50 [Suspect]
     Active Substance: ZINC OXIDE
     Indication: Prophylaxis against solar radiation
     Route: 061
     Dates: start: 20210905, end: 20210907

REACTIONS (4)
  - Rash pruritic [None]
  - Rash erythematous [None]
  - Rash papular [None]
  - Recalled product administered [None]

NARRATIVE: CASE EVENT DATE: 20210907
